FAERS Safety Report 18788390 (Version 1)
Quarter: 2021Q1

REPORT INFORMATION
  Report Type: Spontaneous
  Country: US (occurrence: US)
  Receive Date: 20210125
  Receipt Date: 20210125
  Transmission Date: 20210419
  Serious: No
  Sender: FDA-Public Use
  Company Number: US-ROCHE-2691578

PATIENT
  Sex: Female

DRUGS (1)
  1. RITUXAN [Suspect]
     Active Substance: RITUXIMAB
     Indication: BREAST CANCER
     Dosage: ONGOING: NO
     Route: 042

REACTIONS (5)
  - Intentional product use issue [Unknown]
  - Weight increased [Unknown]
  - Fatigue [Unknown]
  - Alopecia [Recovered/Resolved]
  - Off label use [Unknown]
